FAERS Safety Report 15838816 (Version 2)
Quarter: 2019Q4

REPORT INFORMATION
  Report Type: Spontaneous
  Country: FI (occurrence: FI)
  Receive Date: 20190117
  Receipt Date: 20191203
  Transmission Date: 20200122
  Serious: Yes (Life-Threatening, Hospitalization)
  Sender: FDA-Public Use
  Company Number: FI-ELI_LILLY_AND_COMPANY-FI201901006456

PATIENT
  Age: 62 Year
  Sex: Male

DRUGS (12)
  1. ZYPADHERA [Suspect]
     Active Substance: OLANZAPINE PAMOATE
     Indication: SCHIZOPHRENIA
     Dosage: 300 MG, 2/M
     Route: 030
     Dates: start: 20170208, end: 20171130
  2. OPAMOX [Concomitant]
     Active Substance: OXAZEPAM
  3. ZYPADHERA [Suspect]
     Active Substance: OLANZAPINE PAMOATE
     Dosage: 405 MG, MONTHLY (1/M)
     Route: 030
     Dates: start: 20181211
  4. NORITREN [Concomitant]
     Active Substance: NORTRIPTYLINE HYDROCHLORIDE
     Dosage: UNK
  5. CALCI CHEW D3 [Concomitant]
     Active Substance: CALCIUM CARBONATE\CHOLECALCIFEROL
     Dosage: UNK
  6. ENALAPRIL ORION [Concomitant]
     Dosage: UNK
  7. ZANIDIP [Concomitant]
     Active Substance: LERCANIDIPINE HYDROCHLORIDE
     Dosage: UNK
  8. VOLTAREN [Concomitant]
     Active Substance: DICLOFENAC SODIUM
     Dosage: UNK
  9. PANADOL FORTE [PARACETAMOL] [Concomitant]
  10. TOSTRAN [Concomitant]
     Active Substance: TESTOSTERONE
     Dosage: UNK
  11. OLANZAPINE. [Suspect]
     Active Substance: OLANZAPINE
     Indication: SCHIZOPHRENIA
     Dosage: 10 MG, DAILY
     Route: 065
     Dates: start: 20161107, end: 20170208
  12. TRIPTYL [Concomitant]
     Active Substance: AMITRIPTYLINE HYDROCHLORIDE

REACTIONS (19)
  - Pneumonia aspiration [Recovered/Resolved]
  - Haemoglobin decreased [Recovered/Resolved]
  - Feeling abnormal [Recovered/Resolved]
  - Sedation [Recovered/Resolved]
  - Oesophagitis [Recovered/Resolved]
  - Aspiration [Recovered/Resolved]
  - Dizziness [Recovered/Resolved]
  - Unresponsive to stimuli [Recovered/Resolved]
  - Vomiting [Recovered/Resolved]
  - Somnolence [Recovered/Resolved]
  - Disorientation [Recovered/Resolved]
  - Depressed level of consciousness [Recovered/Resolved]
  - Respiratory failure [Recovered/Resolved]
  - Hypertension [Recovered/Resolved]
  - Malaise [Recovered/Resolved]
  - Heart rate increased [Not Recovered/Not Resolved]
  - Loss of consciousness [Recovered/Resolved]
  - Oesophageal haemorrhage [Recovered/Resolved]
  - Post-injection delirium sedation syndrome [Recovered/Resolved]

NARRATIVE: CASE EVENT DATE: 20181211
